FAERS Safety Report 16679144 (Version 1)
Quarter: 2019Q3

REPORT INFORMATION
  Report Type: Spontaneous
  Country: US (occurrence: US)
  Receive Date: 20190807
  Receipt Date: 20190807
  Transmission Date: 20191004
  Serious: Yes (Other)
  Sender: FDA-Public Use
  Company Number: PHEH2019US032658

PATIENT
  Sex: Male

DRUGS (1)
  1. TREPROSTINIL. [Suspect]
     Active Substance: TREPROSTINIL
     Indication: PRODUCT USED FOR UNKNOWN INDICATION
     Dosage: 15 MG/KG/MIN(CONTINUOUS)
     Route: 042
     Dates: start: 20190618

REACTIONS (3)
  - Abdominal pain [Unknown]
  - Nausea [Unknown]
  - Liver injury [Unknown]
